FAERS Safety Report 7242913-1 (Version None)
Quarter: 2011Q1

REPORT INFORMATION
  Report Type: 
  Country: None (occurrence: None)
  Receive Date: 20110125
  Receipt Date: 20110112
  Transmission Date: 20110831
  Serious: Yes (Other)
  Sender: FDA-Public Use
  Company Number: US-ELI_LILLY_AND_COMPANY-US201012001438

PATIENT
  Age: 10 Year
  Sex: Female

DRUGS (2)
  1. STRATTERA [Suspect]
     Dosage: 1 D/F, UNK
  2. KEPPRA [Concomitant]

REACTIONS (2)
  - MOOD SWINGS [None]
  - SUICIDAL IDEATION [None]
